FAERS Safety Report 16029568 (Version 4)
Quarter: 2025Q2

REPORT INFORMATION
  Report Type: Report from Study
  Country: US (occurrence: US)
  Receive Date: 20190304
  Receipt Date: 20250506
  Transmission Date: 20250717
  Serious: Yes (Hospitalization)
  Sender: AMNEAL
  Company Number: US-IMPAX LABORATORIES, LLC-2018-IPXL-01646

PATIENT
  Sex: Male
  Weight: 125 kg

DRUGS (4)
  1. CARBIDOPA\LEVODOPA [Suspect]
     Active Substance: CARBIDOPA\LEVODOPA
     Indication: Parkinson^s disease
     Dosage: 2 CAPSULES (23.75/95 MG), 2X/DAY
     Route: 048
     Dates: start: 2016
  2. CARBIDOPA\LEVODOPA [Suspect]
     Active Substance: CARBIDOPA\LEVODOPA
     Dosage: 2 CAPSULES (36.25/145MG), 3X/DAY
     Route: 048
     Dates: start: 20180517
  3. CARBIDOPA\LEVODOPA [Suspect]
     Active Substance: CARBIDOPA\LEVODOPA
     Dosage: 2 CAPSULES (23.75/95 MG), 2X/DAY
     Route: 048
     Dates: start: 2018
  4. CARBIDOPA\LEVODOPA [Suspect]
     Active Substance: CARBIDOPA\LEVODOPA
     Dosage: 3 CAPSULES (23.75/95 MG), 2X/DAY
     Route: 048
     Dates: start: 20190613

REACTIONS (6)
  - Hospitalisation [Unknown]
  - Tremor [Recovering/Resolving]
  - Fatigue [Unknown]
  - Nausea [Unknown]
  - Vomiting [Unknown]
  - Therapy cessation [Unknown]
